FAERS Safety Report 5012706-4 (Version None)
Quarter: 2006Q2

REPORT INFORMATION
  Report Type: 
  Country: None (occurrence: None)
  Receive Date: 20060524
  Receipt Date: 20060511
  Transmission Date: 20061013
  Serious: Yes (Other)
  Sender: FDA-Public Use
  Company Number: 2006052676

PATIENT
  Age: 72 Year
  Sex: Male

DRUGS (5)
  1. LINEZOLID [Suspect]
     Indication: RESPIRATORY TRACT INFECTION
     Dosage: 1200 MG (600 MG, 2 IN 1 D), ORAL
     Route: 048
     Dates: start: 20060402, end: 20060417
  2. DIGOXIN [Concomitant]
  3. BETA BLOCKING AGENTS (BETA BLOCKING AGENTS) [Concomitant]
  4. DIURETICS (DIURETICS) [Concomitant]
  5. FLUOXETINE [Concomitant]

REACTIONS (2)
  - IATROGENIC INJURY [None]
  - RENAL FAILURE [None]
